FAERS Safety Report 24396991 (Version 1)
Quarter: 2024Q4

REPORT INFORMATION
  Report Type: Spontaneous
  Country: ZA (occurrence: ZA)
  Receive Date: 20241004
  Receipt Date: 20241004
  Transmission Date: 20250114
  Serious: Yes (Death)
  Sender: VIFOR
  Company Number: ZA-ROCHE-10000087927

PATIENT
  Age: 72 Year
  Sex: Female

DRUGS (1)
  1. MIRCERA [Suspect]
     Active Substance: METHOXY POLYETHYLENE GLYCOL-EPOETIN BETA
     Indication: Product used for unknown indication
     Route: 065

REACTIONS (3)
  - Death [Fatal]
  - Vitamin D deficiency [Unknown]
  - Monocytosis [Unknown]

NARRATIVE: CASE EVENT DATE: 20231101
